FAERS Safety Report 8577898-9 (Version None)
Quarter: 2012Q3

REPORT INFORMATION
  Report Type: 
  Country: None (occurrence: None)
  Receive Date: 20120808
  Receipt Date: 20120731
  Transmission Date: 20120928
  Serious: No
  Sender: FDA-Public Use
  Company Number: US-BIOGENIDEC-2008BI013782

PATIENT
  Age: 58 Year
  Sex: Female

DRUGS (6)
  1. AVONEX [Suspect]
     Route: 030
  2. IMITREX [Concomitant]
     Indication: MIGRAINE
  3. AVONEX [Suspect]
     Route: 030
     Dates: start: 20080522
  4. AVONEX [Suspect]
     Route: 030
     Dates: start: 20080515
  5. AVONEX [Suspect]
     Route: 030
     Dates: start: 20080530
  6. AVONEX [Suspect]
     Indication: MULTIPLE SCLEROSIS
     Route: 030
     Dates: start: 20080508

REACTIONS (3)
  - ALOPECIA [None]
  - MIGRAINE [None]
  - GENERAL SYMPTOM [None]
